FAERS Safety Report 15726170 (Version 1)
Quarter: 2018Q4

REPORT INFORMATION
  Report Type: Spontaneous
  Country: US (occurrence: US)
  Receive Date: 20181216
  Receipt Date: 20181216
  Transmission Date: 20190205
  Serious: No
  Sender: FDA-Public Use
  Company Number: US-SUPERNUS PHARMACEUTICALS, INC.-2018SUP00201

PATIENT
  Age: 43 Year
  Sex: Female
  Weight: 73.92 kg

DRUGS (3)
  1. TROKENDI XR [Suspect]
     Active Substance: TOPIRAMATE
     Indication: MIGRAINE PROPHYLAXIS
     Dosage: 50 MG, 1X/DAY
     Route: 048
     Dates: start: 20170625
  2. TROKENDI XR [Suspect]
     Active Substance: TOPIRAMATE
     Indication: WEIGHT CONTROL
  3. MIGRELIEF [Concomitant]

REACTIONS (3)
  - Migraine [Not Recovered/Not Resolved]
  - Drug ineffective [Not Recovered/Not Resolved]
  - Paraesthesia [Not Recovered/Not Resolved]

NARRATIVE: CASE EVENT DATE: 201801
